FAERS Safety Report 11211514 (Version 3)
Quarter: 2015Q3

REPORT INFORMATION
  Report Type: Spontaneous
  Country: US (occurrence: US)
  Receive Date: 20150623
  Receipt Date: 20150717
  Transmission Date: 20151125
  Serious: Yes (Hospitalization)
  Sender: FDA-Public Use
  Company Number: US-UNITED THERAPEUTICS-UNT-2015-007222

PATIENT
  Age: 50 Year
  Sex: Female
  Weight: 68.27 kg

DRUGS (3)
  1. COUMADIN [Concomitant]
     Active Substance: WARFARIN SODIUM
     Indication: PRODUCT USED FOR UNKNOWN INDICATION
  2. REMODULIN [Suspect]
     Active Substance: TREPROSTINIL
     Indication: PULMONARY ARTERIAL HYPERTENSION
     Dosage: 0.033 ?G/KG, CONTINUING
     Route: 041
     Dates: start: 20110317
  3. REMODULIN [Suspect]
     Active Substance: TREPROSTINIL
     Dosage: 0.033 ?G/KG, CONTINUING
     Route: 041
     Dates: start: 20110329

REACTIONS (5)
  - Device breakage [Unknown]
  - Device dislocation [Unknown]
  - Drug dose omission [Unknown]
  - Injection site oedema [Unknown]
  - Syncope [Unknown]

NARRATIVE: CASE EVENT DATE: 201506
